FAERS Safety Report 18822005 (Version 1)
Quarter: 2021Q1

REPORT INFORMATION
  Report Type: Spontaneous
  Country: US (occurrence: US)
  Receive Date: 20210202
  Receipt Date: 20210202
  Transmission Date: 20210419
  Serious: No
  Sender: FDA-Public Use
  Company Number: US-PFIZER INC-2021063558

PATIENT
  Age: 62 Year
  Sex: Female

DRUGS (2)
  1. ANASTROZOLE ACCORD [Suspect]
     Active Substance: ANASTROZOLE
     Dosage: UNK
  2. EXEMESTANE. [Suspect]
     Active Substance: EXEMESTANE
     Dosage: UNK

REACTIONS (3)
  - Insomnia [Unknown]
  - Hot flush [Unknown]
  - Arthralgia [Unknown]
